FAERS Safety Report 8510659-5 (Version None)
Quarter: 2012Q3

REPORT INFORMATION
  Report Type: 
  Country: None (occurrence: None)
  Receive Date: 20120716
  Receipt Date: 20120702
  Transmission Date: 20120928
  Serious: Yes (Other)
  Sender: FDA-Public Use
  Company Number: US-009507513-1207USA000781

PATIENT

DRUGS (2)
  1. PEG-INTRON [Suspect]
     Indication: HEPATITIS C
     Dosage: UNK
     Dates: start: 20120409
  2. REBETOL [Suspect]
     Indication: HEPATITIS C
     Dosage: UNK
     Dates: start: 20120409

REACTIONS (11)
  - MEMORY IMPAIRMENT [None]
  - NECK PAIN [None]
  - HEADACHE [None]
  - VASCULITIS [None]
  - SCAN BRAIN [None]
  - VOMITING [None]
  - EATING DISORDER [None]
  - FEELING ABNORMAL [None]
  - ANAEMIA [None]
  - ABDOMINAL PAIN UPPER [None]
  - NAUSEA [None]
